FAERS Safety Report 20984458 (Version 1)
Quarter: 2022Q2

REPORT INFORMATION
  Report Type: Spontaneous
  Country: US (occurrence: None)
  Receive Date: 20220621
  Receipt Date: 20220621
  Transmission Date: 20220721
  Serious: No
  Sender: FDA-Public Use
  Company Number: US-ROCHE-2837515

PATIENT
  Sex: Female

DRUGS (3)
  1. CAPECITABINE [Suspect]
     Active Substance: CAPECITABINE
     Indication: Product used for unknown indication
     Route: 048
  2. CAPECITABINE [Suspect]
     Active Substance: CAPECITABINE
     Dosage: 8-9 DAYS ON AND 8-9 DAYS OFF
     Route: 048
  3. TUKYSA [Suspect]
     Active Substance: TUCATINIB
     Indication: Breast cancer female
     Route: 065

REACTIONS (7)
  - Hand-foot-and-mouth disease [Unknown]
  - Paraesthesia [Unknown]
  - Skin exfoliation [Unknown]
  - Skin discolouration [Unknown]
  - Diarrhoea [Unknown]
  - Fatigue [Unknown]
  - Dysphagia [Unknown]
